FAERS Safety Report 6100533-6 (Version None)
Quarter: 2009Q1

REPORT INFORMATION
  Report Type: 
  Country: None (occurrence: None)
  Receive Date: 20090227
  Receipt Date: 20090227
  Transmission Date: 20090719
  Serious: Yes (Hospitalization)
  Sender: FDA-Public Use
  Company Number: None

PATIENT
  Age: 86 Year
  Sex: Male

DRUGS (10)
  1. ULTRACET [Suspect]
     Indication: PAIN
     Dosage: 1 TABLET Q4H PRN PO X 3 DAYS
     Route: 048
  2. AMIODARONE [Concomitant]
  3. COREG [Concomitant]
  4. LASIX [Concomitant]
  5. LEXAPRO [Concomitant]
  6. POTASSIUM ORAL [Concomitant]
  7. PROTONIX [Concomitant]
  8. SEROQUEL [Concomitant]
  9. SYNTHROID [Concomitant]
  10. TYLENOL -ALL CHRONIC- [Concomitant]

REACTIONS (1)
  - CONFUSIONAL STATE [None]
